FAERS Safety Report 4641280-7 (Version None)
Quarter: 2005Q2

REPORT INFORMATION
  Report Type: 
  Country: None (occurrence: None)
  Receive Date: 20050420
  Receipt Date: 20050420
  Transmission Date: 20051028
  Serious: No
  Sender: FDA-Public Use
  Company Number: None

PATIENT
  Age: 51 Year
  Sex: Male
  Weight: 122.9248 kg

DRUGS (7)
  1. ERBITUX 100 MG VIAL - BRISTOL MYETRS SQUIBB [Suspect]
     Indication: COLORECTAL CANCER
     Dosage: 1000 MG IV
     Route: 042
     Dates: start: 20050415
  2. ERBITUX 100 MG VIAL - BRISTOL MYETRS SQUIBB [Suspect]
     Indication: METASTASES TO LUNG
     Dosage: 1000 MG IV
     Route: 042
     Dates: start: 20050415
  3. COUMADIN [Concomitant]
  4. M.V.I. [Concomitant]
  5. ZYRTEC [Concomitant]
  6. NASACORT [Concomitant]
  7. ZANTAC [Concomitant]

REACTIONS (9)
  - CHEST PAIN [None]
  - ERYTHEMA [None]
  - FEELING HOT [None]
  - HEART RATE INCREASED [None]
  - INFUSION RELATED REACTION [None]
  - PRURITUS [None]
  - RASH [None]
  - THROAT TIGHTNESS [None]
  - URTICARIA [None]
